FAERS Safety Report 12743881 (Version 2)
Quarter: 2016Q3

REPORT INFORMATION
  Report Type: Spontaneous
  Country: JP (occurrence: JP)
  Receive Date: 20160914
  Receipt Date: 20160919
  Transmission Date: 20161109
  Serious: Yes (Hospitalization, Other)
  Sender: FDA-Public Use
  Company Number: JP-PFIZER INC-2016428242

PATIENT
  Age: 80 Year
  Sex: Female
  Weight: 31.4 kg

DRUGS (4)
  1. ULCERLMIN [Concomitant]
     Active Substance: SUCRALFATE
     Dosage: UNK
     Dates: start: 20160728
  2. LOXONIN [Concomitant]
     Active Substance: LOXOPROFEN SODIUM
  3. RHEUMATREX [Suspect]
     Active Substance: METHOTREXATE SODIUM
     Indication: RHEUMATOID ARTHRITIS
     Dosage: 4 MG WEEKLY
     Route: 048
     Dates: end: 20160815
  4. PREDNISOLONE. [Concomitant]
     Active Substance: PREDNISOLONE

REACTIONS (3)
  - Pancytopenia [Recovered/Resolved]
  - Hypokalaemia [Unknown]
  - Hyponatraemia [Unknown]

NARRATIVE: CASE EVENT DATE: 20160717
